FAERS Safety Report 5751601-X (Version None)
Quarter: 2008Q2

REPORT INFORMATION
  Report Type: 
  Country: None (occurrence: None)
  Receive Date: 20080528
  Receipt Date: 20080519
  Transmission Date: 20081010
  Serious: Yes (Other)
  Sender: FDA-Public Use
  Company Number: PHHY2008CN08141

PATIENT
  Age: 40 Year
  Sex: Male

DRUGS (3)
  1. SEBIVO [Suspect]
     Indication: HEPATITIS B
     Dosage: 600 MG, QD
     Route: 048
     Dates: start: 20071001, end: 20080401
  2. INTERFERON [Concomitant]
     Dates: start: 20071001
  3. VITAMIN B [Concomitant]

REACTIONS (3)
  - GAIT DISTURBANCE [None]
  - HYPOAESTHESIA [None]
  - OEDEMA PERIPHERAL [None]
